FAERS Safety Report 7672135-1 (Version None)
Quarter: 2011Q3

REPORT INFORMATION
  Report Type: 
  Country: None (occurrence: None)
  Receive Date: 20110809
  Receipt Date: 20110802
  Transmission Date: 20111222
  Serious: Yes (Other)
  Sender: FDA-Public Use
  Company Number: GB-PFIZER INC-2011176960

PATIENT
  Age: 29 Year
  Sex: Female
  Weight: 65 kg

DRUGS (2)
  1. CEPHALEXIN [Suspect]
     Dosage: UNK
  2. METRONIDAZOLE [Suspect]
     Dosage: UNK

REACTIONS (5)
  - NAUSEA [None]
  - RASH GENERALISED [None]
  - DRUG HYPERSENSITIVITY [None]
  - THROAT IRRITATION [None]
  - PHARYNGEAL OEDEMA [None]
